FAERS Safety Report 19001671 (Version 3)
Quarter: 2022Q3

REPORT INFORMATION
  Report Type: Spontaneous
  Country: US (occurrence: None)
  Receive Date: 20210312
  Receipt Date: 20220907
  Transmission Date: 20221027
  Serious: No
  Sender: FDA-Public Use
  Company Number: US-FARMAPROD-202011-1575

PATIENT
  Sex: Female

DRUGS (5)
  1. OXERVATE [Suspect]
     Active Substance: CENEGERMIN-BKBJ
     Indication: Neurotrophic keratopathy
     Route: 047
     Dates: start: 20200819, end: 20200928
  2. OXERVATE [Suspect]
     Active Substance: CENEGERMIN-BKBJ
     Indication: Hypoaesthesia eye
     Route: 047
     Dates: start: 20201123, end: 20210118
  3. OXERVATE [Suspect]
     Active Substance: CENEGERMIN-BKBJ
     Route: 047
     Dates: start: 20210406, end: 20210528
  4. OXERVATE [Suspect]
     Active Substance: CENEGERMIN-BKBJ
     Route: 047
     Dates: start: 20211118, end: 20211230
  5. OXERVATE [Suspect]
     Active Substance: CENEGERMIN-BKBJ
     Route: 047
     Dates: start: 20220111

REACTIONS (15)
  - Eye pain [Not Recovered/Not Resolved]
  - Influenza like illness [Unknown]
  - Malaise [Unknown]
  - Fatigue [Unknown]
  - Photophobia [Not Recovered/Not Resolved]
  - Hypoaesthesia [Unknown]
  - Sinus pain [Unknown]
  - Lacrimation increased [Unknown]
  - Anosmia [Unknown]
  - Ageusia [Unknown]
  - Sinus headache [Unknown]
  - Eye swelling [Unknown]
  - Eye irritation [Unknown]
  - Wrong technique in product usage process [Unknown]
  - Hordeolum [Unknown]
